FAERS Safety Report 8547147 (Version 8)
Quarter: 2012Q4

REPORT INFORMATION
  Report Type: 
  Country: CA (occurrence: CA)
  Receive Date: 20120504
  Receipt Date: 20121115
  Transmission Date: 20130627
  Serious: Yes (Other)
  Sender: FDA-Public Use
  Company Number: CA-ROCHE-1064512

PATIENT
  Age: 65 Year
  Sex: Female

DRUGS (2)
  1. XOLAIR [Suspect]
     Indication: SINUSITIS
     Route: 058
     Dates: start: 20110822
  2. XOLAIR [Suspect]
     Indication: ASTHMA
     Route: 058
     Dates: start: 20120807

REACTIONS (8)
  - Sinusitis [Unknown]
  - Blood pressure increased [Unknown]
  - Hypertension [Unknown]
  - Injection site discomfort [Unknown]
  - Cough [Unknown]
  - Dysphonia [Unknown]
  - Breath sounds abnormal [Unknown]
  - Drug ineffective [Unknown]
